FAERS Safety Report 20441447 (Version 2)
Quarter: 2022Q1

REPORT INFORMATION
  Report Type: Spontaneous
  Country: US (occurrence: US)
  Receive Date: 20220208
  Receipt Date: 20220222
  Transmission Date: 20220423
  Serious: No
  Sender: FDA-Public Use
  Company Number: US-AMGEN-USASP2022015777

PATIENT
  Sex: Female
  Weight: 110 kg

DRUGS (1)
  1. REPATHA [Suspect]
     Active Substance: EVOLOCUMAB
     Indication: Blood cholesterol increased
     Dosage: 420 MILLIGRAM
     Route: 065
     Dates: start: 2021

REACTIONS (5)
  - Tongue disorder [Recovered/Resolved]
  - Oral pain [Recovered/Resolved]
  - Glossodynia [Recovered/Resolved]
  - Oral disorder [Recovered/Resolved]
  - Low density lipoprotein increased [Not Recovered/Not Resolved]

NARRATIVE: CASE EVENT DATE: 20210101
